FAERS Safety Report 8781125 (Version 1)
Quarter: 2012Q4

REPORT INFORMATION
  Report Type: 
  Country: US (occurrence: US)
  Receive Date: 20120913
  Receipt Date: 20120913
  Transmission Date: 20130627
  Serious: Yes (Other)
  Sender: FDA-Public Use
  Company Number: US-VERTEX PHARMACEUTICAL INC.-AE-2012-008039

PATIENT
  Age: 62 None
  Sex: Male
  Weight: 68.18 kg

DRUGS (6)
  1. INCIVEK [Suspect]
     Indication: HEPATITIS C
     Route: 048
     Dates: start: 20120226, end: 20120415
  2. INCIVEK [Suspect]
     Route: 048
     Dates: start: 20120514
  3. PEGASYS [Concomitant]
     Indication: HEPATITIS C
     Route: 058
     Dates: start: 20120226, end: 20120415
  4. PEGASYS [Concomitant]
     Route: 058
     Dates: start: 20120514
  5. RIBAVIRIN [Concomitant]
     Indication: HEPATITIS C
     Route: 048
     Dates: start: 20120226, end: 20120415
  6. RIBAVIRIN [Concomitant]
     Route: 048
     Dates: start: 20120514

REACTIONS (10)
  - Red blood cell count decreased [Unknown]
  - Feeling cold [Not Recovered/Not Resolved]
  - Weight decreased [Not Recovered/Not Resolved]
  - Pain [Not Recovered/Not Resolved]
  - Malaise [Not Recovered/Not Resolved]
  - Rash [Not Recovered/Not Resolved]
  - Diarrhoea [Not Recovered/Not Resolved]
  - Pruritus [Not Recovered/Not Resolved]
  - Nausea [Recovered/Resolved]
  - Anorectal discomfort [Not Recovered/Not Resolved]
